FAERS Safety Report 19154182 (Version 1)
Quarter: 2021Q2

REPORT INFORMATION
  Report Type: Spontaneous
  Country: TW (occurrence: TW)
  Receive Date: 20210419
  Receipt Date: 20210419
  Transmission Date: 20210717
  Serious: Yes (Death, Other)
  Sender: FDA-Public Use
  Company Number: TW-ASTRAZENECA-2021A325612

PATIENT
  Age: 61 Year
  Sex: Female

DRUGS (5)
  1. TAMOXIFEN [Suspect]
     Active Substance: TAMOXIFEN
     Route: 048
  2. PALBOCICLIB [Suspect]
     Active Substance: PALBOCICLIB
     Route: 065
     Dates: start: 20190723
  3. ARIMIDEX [Suspect]
     Active Substance: ANASTROZOLE
     Route: 048
  4. FASLODEX [Suspect]
     Active Substance: FULVESTRANT
     Dosage: EVERY FOUR WEEKS
     Route: 030
     Dates: start: 20171225, end: 20180423
  5. LYNPARZA [Suspect]
     Active Substance: OLAPARIB
     Indication: BREAST CANCER
     Dosage: EVERY 12 HOURS
     Route: 048
     Dates: start: 201911

REACTIONS (11)
  - Metastases to central nervous system [Unknown]
  - Pyrexia [Unknown]
  - Disease recurrence [Unknown]
  - Metastases to liver [Unknown]
  - Hydrocephalus [Unknown]
  - Haematocrit abnormal [Unknown]
  - Blood bilirubin abnormal [Unknown]
  - Aspartate aminotransferase abnormal [Unknown]
  - Neutropenia [Unknown]
  - Death [Fatal]
  - Metastases to lung [Unknown]

NARRATIVE: CASE EVENT DATE: 2017
